FAERS Safety Report 4298743-6 (Version None)
Quarter: 2004Q1

REPORT INFORMATION
  Report Type: 
  Country: None (occurrence: None)
  Receive Date: 20040126
  Receipt Date: 20031029
  Transmission Date: 20041129
  Serious: No
  Sender: FDA-Public Use
  Company Number: USA031051063

PATIENT
  Age: 7 Year
  Sex: Female

DRUGS (3)
  1. STRATTERA [Suspect]
     Indication: DISTURBANCE IN ATTENTION
     Dosage: 25 MG/IN THE MORNING
     Dates: start: 20030801
  2. ALLEGRA [Concomitant]
  3. ALLERGY SHOT [Concomitant]

REACTIONS (11)
  - CRYING [None]
  - DECREASED APPETITE [None]
  - DEPRESSION [None]
  - DERMATITIS CONTACT [None]
  - DRUG INTERACTION [None]
  - LACRIMATION INCREASED [None]
  - NEGATIVE THOUGHTS [None]
  - PERSONALITY CHANGE [None]
  - PRURITUS [None]
  - SOMNOLENCE [None]
  - WEIGHT DECREASED [None]
